FAERS Safety Report 18288219 (Version 1)
Quarter: 2020Q3

REPORT INFORMATION
  Report Type: Spontaneous
  Country: US (occurrence: US)
  Receive Date: 20200918
  Receipt Date: 20200918
  Transmission Date: 20201103
  Serious: Yes (Hospitalization)
  Sender: FDA-Public Use
  Company Number: None

PATIENT
  Sex: Male

DRUGS (11)
  1. ALBUTEROL NEB [Concomitant]
     Active Substance: ALBUTEROL
  2. SULFASALAZINE DELAYED?RELEASE [Concomitant]
     Active Substance: SULFASALAZINE
  3. GABAPENTIN. [Concomitant]
     Active Substance: GABAPENTIN
  4. PREDNISONE. [Concomitant]
     Active Substance: PREDNISONE
  5. ALBUTEROL AER [Concomitant]
     Active Substance: ALBUTEROL
  6. LEVOTHYROXIN [Concomitant]
     Active Substance: LEVOTHYROXINE
  7. VALACYCLOVIR [Concomitant]
     Active Substance: VALACYCLOVIR HYDROCHLORIDE
  8. HYDROXYCHLOR [Concomitant]
     Active Substance: HYDROXYCHLOROQUINE
  9. ESBRIET [Suspect]
     Active Substance: PIRFENIDONE
     Indication: IDIOPATHIC PULMONARY FIBROSIS
     Dosage: ?          OTHER DOSE:3 CAPS;OTHER FREQUENCY:QPM;?
     Route: 048
     Dates: start: 20200512
  10. DOXYCYCL HYC [Concomitant]
  11. ATORVASTATIN [Concomitant]
     Active Substance: ATORVASTATIN

REACTIONS (3)
  - Blood sodium decreased [None]
  - Therapy interrupted [None]
  - Weight decreased [None]
